FAERS Safety Report 23952710 (Version 4)
Quarter: 2024Q3

REPORT INFORMATION
  Report Type: Report from Study
  Country: KR (occurrence: KR)
  Receive Date: 20240607
  Receipt Date: 20240703
  Transmission Date: 20241016
  Serious: Yes (Hospitalization)
  Sender: PFIZER
  Company Number: KR-PFIZER INC-PV202400074154

PATIENT
  Age: 23 Year
  Sex: Female
  Weight: 45.4 kg

DRUGS (16)
  1. VINCRISTINE SULFATE [Suspect]
     Active Substance: VINCRISTINE SULFATE
     Indication: Chemotherapy
     Dosage: UNK
     Route: 042
     Dates: start: 20220104
  2. INVESTIGATIONAL PRODUCT [Suspect]
     Active Substance: INVESTIGATIONAL PRODUCT
     Indication: Diffuse large B-cell lymphoma
     Dosage: TAFASITAMAB VS PLACEBO, 1 TIME/WEEK
     Route: 042
     Dates: start: 20220104, end: 20220426
  3. INVESTIGATIONAL PRODUCT [Suspect]
     Active Substance: INVESTIGATIONAL PRODUCT
     Indication: Chemotherapy
  4. INVESTIGATIONAL PRODUCT [Suspect]
     Active Substance: INVESTIGATIONAL PRODUCT
     Indication: Chemotherapy
     Dosage: D1-D10 CYCLIC, LENALIDOMIDE VS PLACEBO
     Route: 048
     Dates: start: 20220104, end: 20220405
  5. RITUXIMAB [Suspect]
     Active Substance: RITUXIMAB
     Indication: Chemotherapy
     Dosage: INFUSION
     Dates: start: 20220104
  6. DOXORUBICIN [Suspect]
     Active Substance: DOXORUBICIN
     Indication: Chemotherapy
     Dosage: UNK
     Route: 042
     Dates: start: 20220104
  7. CYCLOPHOSPHAMIDE [Suspect]
     Active Substance: CYCLOPHOSPHAMIDE
     Indication: Chemotherapy
     Dosage: INFUSION
     Dates: start: 20220104
  8. PREDNISOLONE [Suspect]
     Active Substance: PREDNISOLONE
     Indication: Chemotherapy
     Dosage: MILLIGRAM/SQ. METER
     Route: 042
     Dates: start: 20220104
  9. AKYNZEO (NETUPITANT\PALONOSETRON HYDROCHLORIDE) [Concomitant]
     Active Substance: NETUPITANT\PALONOSETRON HYDROCHLORIDE
     Indication: Antiemetic supportive care
     Dosage: 300 MG, DAILY
     Route: 048
     Dates: start: 20220419, end: 20220419
  10. LEVOFLOXACIN [Concomitant]
     Active Substance: LEVOFLOXACIN
     Indication: Infection prophylaxis
     Dosage: 500 MG, DAILY
     Route: 048
     Dates: start: 20220109
  11. RABIET [Concomitant]
     Indication: Prophylaxis
     Dosage: 10 MG, DAILY
     Route: 048
     Dates: start: 20220118
  12. ZOYLEX [ACICLOVIR] [Concomitant]
     Indication: Infection prophylaxis
     Dosage: 400 MG, DAILY
     Route: 048
     Dates: start: 20220104
  13. DIFLEX [DICLOFENAC SODIUM] [Concomitant]
     Indication: Infection prophylaxis
     Dosage: 50 MG, DAILY
     Route: 048
     Dates: start: 20220109
  14. ACETAMINOPHEN [Concomitant]
     Active Substance: ACETAMINOPHEN
     Indication: Prophylaxis
     Dosage: 650 MG, DAILY
     Route: 048
     Dates: start: 20220419, end: 20220419
  15. PENIRAMIN [Concomitant]
     Indication: Prophylaxis
     Dosage: 4 MG, DAILY
     Route: 042
     Dates: start: 20220419, end: 20220419
  16. MESNA [Concomitant]
     Active Substance: MESNA
     Indication: Prophylaxis
     Dosage: 400 MG
     Route: 042
     Dates: start: 20220419, end: 20220419

REACTIONS (1)
  - Febrile neutropenia [Recovered/Resolved]

NARRATIVE: CASE EVENT DATE: 20220427
